FAERS Safety Report 16796831 (Version 1)
Quarter: 2019Q3

REPORT INFORMATION
  Report Type: Spontaneous
  Country: JP (occurrence: JP)
  Receive Date: 20190911
  Receipt Date: 20190911
  Transmission Date: 20191005
  Serious: Yes (Hospitalization)
  Sender: FDA-Public Use
  Company Number: PHHY2019JP191384

PATIENT
  Age: 42 Year
  Sex: Female
  Weight: 68 kg

DRUGS (2)
  1. GOREISAN [Concomitant]
     Active Substance: HERBALS
     Indication: OEDEMA
     Dosage: UNK
     Route: 065
     Dates: start: 20190611, end: 20190716
  2. HYCAMTIN [Suspect]
     Active Substance: TOPOTECAN HYDROCHLORIDE
     Indication: CERVIX CARCINOMA
     Dosage: 1.5 MG/M2, QD
     Route: 042
     Dates: start: 20190611, end: 20190615

REACTIONS (6)
  - Pyrexia [Recovered/Resolved]
  - Urinary tract infection [Unknown]
  - Neutrophil count decreased [Recovered/Resolved]
  - Dizziness [Unknown]
  - White blood cell count decreased [Recovered/Resolved]
  - Chills [Unknown]

NARRATIVE: CASE EVENT DATE: 20190618
